FAERS Safety Report 24630462 (Version 2)
Quarter: 2024Q4

REPORT INFORMATION
  Report Type: Spontaneous
  Country: BR (occurrence: BR)
  Receive Date: 20241118
  Receipt Date: 20241219
  Transmission Date: 20250114
  Serious: Yes (Other)
  Sender: PFIZER
  Company Number: BR-TAKEDA-2024TUS112344

PATIENT
  Age: 69 Year
  Sex: Male
  Weight: 72 kg

DRUGS (7)
  1. PANTOPRAZOLE [Suspect]
     Active Substance: PANTOPRAZOLE
     Dosage: UNK
     Route: 065
  2. DEXILANT [Suspect]
     Active Substance: DEXLANSOPRAZOLE
     Indication: Chronic gastritis
     Dosage: 60 MILLIGRAM, QD
     Route: 048
  3. DEXILANT [Suspect]
     Active Substance: DEXLANSOPRAZOLE
     Indication: Oesophagitis ulcerative
     Dosage: UNK
     Route: 065
  4. DEXILANT [Suspect]
     Active Substance: DEXLANSOPRAZOLE
     Indication: Duodenal ulcer
  5. ESPINHEIRA SANTA [Concomitant]
     Dosage: UNK
  6. DIMENHYDRINATE [Concomitant]
     Active Substance: DIMENHYDRINATE
     Indication: Sleep disorder
     Dosage: UNK
  7. CHAMOMILE [MATRICARIA CHAMOMILLA] [Concomitant]
     Dosage: UNK

REACTIONS (10)
  - Duodenal ulcer [Unknown]
  - Gastric ulcer [Unknown]
  - Drug ineffective [Unknown]
  - Burning sensation [Unknown]
  - Chronic gastritis [Unknown]
  - Gastrooesophageal reflux disease [Unknown]
  - Decreased appetite [Unknown]
  - Vomiting [Unknown]
  - Wrong technique in product usage process [Unknown]
  - Product taste abnormal [Unknown]
